FAERS Safety Report 16706694 (Version 2)
Quarter: 2019Q3

REPORT INFORMATION
  Report Type: Spontaneous
  Country: US (occurrence: US)
  Receive Date: 20190815
  Receipt Date: 20190924
  Transmission Date: 20191004
  Serious: Yes (Death, Life-Threatening, Hospitalization, Other)
  Sender: FDA-Public Use
  Company Number: US-009507513-1908USA004177

PATIENT
  Sex: Female
  Weight: 140 kg

DRUGS (1)
  1. KEYTRUDA [Suspect]
     Active Substance: PEMBROLIZUMAB
     Indication: MICROSATELLITE INSTABILITY CANCER
     Dosage: 200 MILLIGRAM, Q3W
     Route: 042
     Dates: start: 20190603, end: 20190603

REACTIONS (6)
  - Cough [Not Recovered/Not Resolved]
  - Pneumonitis [Unknown]
  - Immune-mediated adverse reaction [Unknown]
  - Dyspnoea [Not Recovered/Not Resolved]
  - Death [Fatal]
  - Deep vein thrombosis [Unknown]

NARRATIVE: CASE EVENT DATE: 2019
